FAERS Safety Report 8094818-4 (Version None)
Quarter: 2012Q1

REPORT INFORMATION
  Report Type: 
  Country: None (occurrence: None)
  Receive Date: 20120126
  Receipt Date: 20120109
  Transmission Date: 20120608
  Serious: Yes (Disabling)
  Sender: FDA-Public Use
  Company Number: DKLU1075835

PATIENT
  Age: 1 Year
  Sex: Female
  Weight: 14 kg

DRUGS (2)
  1. SABRIL [Suspect]
     Indication: PRODUCT USED FOR UNKNOWN INDICATION
     Dosage: 70 MG/KG MILLIGRAM(S)/KILOGRAM, 2 IN 1 D, ORAL
     Route: 048
  2. TOPAMAX [Suspect]
     Indication: PRODUCT USED FOR UNKNOWN INDICATION
     Dosage: ORAL
     Route: 048

REACTIONS (3)
  - METABOLIC ACIDOSIS [None]
  - DEVELOPMENTAL DELAY [None]
  - DECREASED APPETITE [None]
